FAERS Safety Report 23411260 (Version 1)
Quarter: 2024Q1

REPORT INFORMATION
  Report Type: Spontaneous
  Country: US (occurrence: US)
  Receive Date: 20240117
  Receipt Date: 20240117
  Transmission Date: 20240410
  Serious: No
  Sender: FDA-Public Use
  Company Number: US-SK LIFE SCIENCE, INC-SKPVG-2023-000428

PATIENT

DRUGS (7)
  1. XCOPRI [Suspect]
     Active Substance: CENOBAMATE
     Indication: Seizure
     Dosage: 12.5 MILLIGRAM
     Route: 048
     Dates: start: 2022
  2. XCOPRI [Suspect]
     Active Substance: CENOBAMATE
     Dosage: UNK
     Route: 048
  3. XCOPRI [Suspect]
     Active Substance: CENOBAMATE
     Dosage: 150 MILLIGRAM
     Route: 048
     Dates: start: 202301, end: 20230131
  4. XCOPRI [Suspect]
     Active Substance: CENOBAMATE
     Dosage: 200 MILLIGRAM, QD
     Route: 048
     Dates: end: 20231009
  5. LAMOTRIGINE [Concomitant]
     Active Substance: LAMOTRIGINE
     Indication: Product used for unknown indication
     Dosage: 150 MILLIGRAM
     Route: 065
  6. APTIOM [Concomitant]
     Active Substance: ESLICARBAZEPINE ACETATE
     Indication: Product used for unknown indication
     Dosage: UNKNOWN
     Route: 065
  7. CLOBAZAM [Concomitant]
     Active Substance: CLOBAZAM
     Indication: Product used for unknown indication
     Dosage: UNKNOWN
     Route: 065

REACTIONS (3)
  - Therapy interrupted [Recovered/Resolved]
  - Seizure [Unknown]
  - Product use issue [Not Recovered/Not Resolved]

NARRATIVE: CASE EVENT DATE: 20230201
